FAERS Safety Report 8775025 (Version 5)
Quarter: 2013Q4

REPORT INFORMATION
  Report Type: Report from Study
  Country: JP (occurrence: JP)
  Receive Date: 20120910
  Receipt Date: 20131105
  Transmission Date: 20140711
  Serious: Yes (Hospitalization, Other)
  Sender: FDA-Public Use
  Company Number: JP-VERTEX PHARMACEUTICAL INC.-2012-020099

PATIENT
  Age: 71 Year
  Sex: Female

DRUGS (13)
  1. VX-950 (TELAPREVIR) [Suspect]
     Indication: CHRONIC HEPATITIS C
     Dosage: 1500 MG, QD
     Route: 048
     Dates: start: 20120626, end: 20120906
  2. REBETOL [Suspect]
     Indication: CHRONIC HEPATITIS C
     Dosage: 600 MG, QD
     Route: 048
     Dates: start: 20120626, end: 20120717
  3. REBETOL [Suspect]
     Dosage: 200 MG, QD
     Route: 048
     Dates: start: 20120718
  4. REBETOL [Suspect]
     Dosage: 200 MG, QOD
     Route: 048
     Dates: end: 20120801
  5. REBETOL [Suspect]
     Dosage: 200 MG, QD
     Route: 048
     Dates: start: 20120809, end: 20120918
  6. REBETOL [Suspect]
     Dosage: 400 MG, QD
     Route: 048
     Dates: start: 20120919, end: 20121211
  7. PEGINTERFERON ALFA-2B [Suspect]
     Indication: CHRONIC HEPATITIS C
     Dosage: 1.5 ?G/KG, QW
     Route: 058
     Dates: start: 20120626
  8. PEGINTERFERON ALFA-2B [Suspect]
     Dosage: 70 ?G/ BODY/ QW
     Route: 058
     Dates: end: 20120823
  9. PEGINTERFERON ALFA-2B [Suspect]
     Dosage: 50 ?G/ BODY/ QW
     Route: 058
     Dates: start: 20120829, end: 20120926
  10. PEGINTERFERON ALFA-2B [Suspect]
     Dosage: 60 ?G/ BODY/ QW
     Route: 058
     Dates: start: 20121003, end: 20121121
  11. PEGINTERFERON ALFA-2B [Suspect]
     Dosage: 60 ?G/ BODY/ QW
     Route: 058
     Dates: start: 20121203, end: 20121212
  12. FAMOTIDINE [Concomitant]
     Dosage: 40 MG, QD
     Route: 048
     Dates: end: 20120820
  13. FAMOTIDINE [Concomitant]
     Dosage: 40 MG, QD
     Route: 048
     Dates: start: 20120820

REACTIONS (3)
  - Decreased appetite [Recovered/Resolved]
  - Neutrophil count decreased [Recovered/Resolved]
  - Retinopathy [Recovered/Resolved]
